FAERS Safety Report 7146079-8 (Version None)
Quarter: 2010Q4

REPORT INFORMATION
  Report Type: 
  Country: None (occurrence: None)
  Receive Date: 20101123
  Receipt Date: 20101115
  Transmission Date: 20110411
  Serious: Yes (Life-Threatening, Hospitalization)
  Sender: FDA-Public Use
  Company Number: 108889

PATIENT
  Age: 21 Year
  Sex: Male

DRUGS (2)
  1. KETAMINE HCL [Suspect]
     Indication: BIOPSY
     Dosage: 100MG IN DIVIDED DOSES PRIOR TO INDUCTION AN
  2. KETAMINE HCL [Suspect]
     Indication: CYTOREDUCTIVE SURGERY
     Dosage: 100MG IN DIVIDED DOSES PRIOR TO INDUCTION AN

REACTIONS (2)
  - CARDIOGENIC SHOCK [None]
  - ELECTROMECHANICAL DISSOCIATION [None]
